FAERS Safety Report 15084123 (Version 1)
Quarter: 2018Q2

REPORT INFORMATION
  Report Type: Report from Study
  Country: IT (occurrence: IT)
  Receive Date: 20180628
  Receipt Date: 20180628
  Transmission Date: 20180711
  Serious: Yes (Hospitalization, Other)
  Sender: FDA-Public Use
  Company Number: IT-EXELIXIS-XL18418014641

PATIENT
  Age: 72 Year
  Sex: Male
  Weight: 88 kg

DRUGS (9)
  1. CABOZANTINIB [Suspect]
     Active Substance: CABOZANTINIB
     Indication: METASTATIC RENAL CELL CARCINOMA
     Dosage: 40 MG, UNK
     Route: 048
     Dates: start: 20180417
  2. MYCOSTATINE [Concomitant]
     Active Substance: NYSTATIN
  3. SAMYR [Concomitant]
     Active Substance: ADEMETIONINE
  4. EPARGRISEOVIT [Concomitant]
     Active Substance: ASCORBIC ACID\CYANOCOBALAMIN\FOLIC ACID\NIACINAMIDE
  5. NIVOLUMAB [Suspect]
     Active Substance: NIVOLUMAB
     Indication: METASTATIC RENAL CELL CARCINOMA
     Dosage: 240 MG, UNK
     Route: 042
     Dates: start: 20180417
  6. DISSENTEN [Concomitant]
     Active Substance: LOPERAMIDE HYDROCHLORIDE
  7. DILATREND [Concomitant]
     Active Substance: CARVEDILOL
  8. IDROCORTISONE [Concomitant]
  9. LUCEN [Concomitant]
     Active Substance: ESOMEPRAZOLE

REACTIONS (1)
  - Hepatotoxicity [Recovering/Resolving]

NARRATIVE: CASE EVENT DATE: 20180601
